FAERS Safety Report 8434939-7 (Version None)
Quarter: 2012Q2

REPORT INFORMATION
  Report Type: 
  Country: None (occurrence: None)
  Receive Date: 20120614
  Receipt Date: 20120607
  Transmission Date: 20120825
  Serious: No
  Sender: FDA-Public Use
  Company Number: US-PFIZER INC-2012138273

PATIENT
  Sex: Female

DRUGS (1)
  1. VFEND [Suspect]
     Dosage: 400 MG, 2X/DAY (200 MG 2 TABLETS BID)
     Route: 048
     Dates: start: 20120423

REACTIONS (1)
  - MIGRAINE [None]
